FAERS Safety Report 23190731 (Version 2)
Quarter: 2024Q1

REPORT INFORMATION
  Report Type: Other
  Country: US (occurrence: None)
  Receive Date: 20231116
  Receipt Date: 20240319
  Transmission Date: 20240410
  Serious: No
  Sender: FDA-Public Use
  Company Number: US-ROCHE-3458617

PATIENT
  Age: 65 Year
  Sex: Male

DRUGS (1)
  1. OCREVUS [Suspect]
     Active Substance: OCRELIZUMAB
     Indication: Multiple sclerosis
     Dosage: SECOND HALF 05/AUG/2022, DATE OF MOST RECENT INFUSION: 11/DEC/2023
     Route: 065
     Dates: start: 20220722

REACTIONS (1)
  - SARS-CoV-2 test positive [Unknown]
